FAERS Safety Report 9342081 (Version 1)
Quarter: 2013Q2

REPORT INFORMATION
  Report Type: Spontaneous
  Country: US (occurrence: US)
  Receive Date: 20130611
  Receipt Date: 20130611
  Transmission Date: 20140414
  Serious: Yes (Death)
  Sender: FDA-Public Use
  Company Number: US-MYLANLABS-2013S1012154

PATIENT
  Age: 58 Year
  Sex: Male

DRUGS (6)
  1. HYDRALAZINE [Suspect]
     Route: 065
  2. LISINOPRIL [Concomitant]
     Route: 065
  3. BUMETANIDE [Concomitant]
     Route: 065
  4. ASPIRIN [Concomitant]
     Route: 065
  5. SPIRONOLACTONE [Concomitant]
     Route: 065
  6. CARVEDILOL [Concomitant]
     Route: 065

REACTIONS (2)
  - Anti-neutrophil cytoplasmic antibody positive vasculitis [Fatal]
  - Pulmonary renal syndrome [Fatal]
